FAERS Safety Report 5810962-3 (Version None)
Quarter: 2008Q3

REPORT INFORMATION
  Report Type: 
  Country: None (occurrence: None)
  Receive Date: 20080716
  Receipt Date: 20080709
  Transmission Date: 20090109
  Serious: Yes (Death)
  Sender: FDA-Public Use
  Company Number: PHBS2008BR05041

PATIENT
  Age: 5 Year
  Sex: Female

DRUGS (6)
  1. IMATINIB MESYLATE [Suspect]
     Indication: CHRONIC MYELOID LEUKAEMIA
     Dosage: 400 MG/DAY
  2. IMATINIB MESYLATE [Suspect]
     Dosage: 800 MG/DAY
  3. HYDROXYUREA [Concomitant]
     Indication: CHRONIC MYELOID LEUKAEMIA
  4. IFN ALPHA [Concomitant]
     Indication: CHRONIC MYELOID LEUKAEMIA
  5. DAUNORUBICIN HCL [Concomitant]
  6. CYTARABINE [Concomitant]

REACTIONS (2)
  - CHLOROMA [None]
  - CHRONIC MYELOID LEUKAEMIA [None]
